FAERS Safety Report 16658171 (Version 2)
Quarter: 2019Q3

REPORT INFORMATION
  Report Type: Spontaneous
  Country: JP (occurrence: JP)
  Receive Date: 20190801
  Receipt Date: 20190903
  Transmission Date: 20191004
  Serious: No
  Sender: FDA-Public Use
  Company Number: JP-GLAXOSMITHKLINE-JP2019JPN137616

PATIENT
  Age: 59 Year
  Sex: Female

DRUGS (4)
  1. CRESTOR [Concomitant]
     Active Substance: ROSUVASTATIN CALCIUM
     Dosage: UNK
  2. ZOVIRAX [Suspect]
     Active Substance: ACYCLOVIR
     Dosage: 200 MG, QD
     Route: 048
  3. VALTREX [Suspect]
     Active Substance: VALACYCLOVIR HYDROCHLORIDE
     Dosage: 500 MG, QD
     Route: 048
  4. LOXOFEN (LOXOPROFEN SODIUM) [Concomitant]
     Active Substance: LOXOPROFEN SODIUM
     Dosage: UNK

REACTIONS (2)
  - Product use issue [Unknown]
  - Prescribed underdose [Unknown]
